FAERS Safety Report 10663641 (Version 3)
Quarter: 2015Q1

REPORT INFORMATION
  Report Type: Spontaneous
  Country: DK (occurrence: DK)
  Receive Date: 20141219
  Receipt Date: 20150302
  Transmission Date: 20150720
  Serious: Yes (Hospitalization)
  Sender: FDA-Public Use
  Company Number: DK-BRISTOL-MYERS SQUIBB COMPANY-BMS-2014-000021

PATIENT
  Age: 88 Year
  Sex: Male
  Weight: 82 kg

DRUGS (8)
  1. DOXAZOSIN ^ORIFARM^ [Concomitant]
     Indication: HYPERTENSION
     Dosage: STYRKE: 4 MG.
     Route: 048
  2. CARDURAN RETARD [Concomitant]
     Dosage: STYRKE: 4 MG.
     Route: 048
  3. LERCASTAD [Concomitant]
     Indication: HYPERTENSION
     Route: 065
  4. ELIQUIS [Suspect]
     Active Substance: APIXABAN
     Indication: THROMBOSIS PROPHYLAXIS
  5. LOSARTANKALIUM OG HYDROCHLORTHIAZID [Concomitant]
     Indication: HYPERTENSION
     Route: 065
     Dates: start: 20140101, end: 201411
  6. ELIQUIS [Suspect]
     Active Substance: APIXABAN
     Indication: THROMBOSIS PROPHYLAXIS
     Dosage: STYRKE: 2,5 MG.
     Route: 048
     Dates: start: 20141104, end: 20141104
  7. CARDURAN RETARD [Concomitant]
     Indication: HYPERTENSION
     Dosage: STYRKE: 4 MG.
     Route: 048
  8. XALCOM [Concomitant]
     Active Substance: LATANOPROST\TIMOLOL
     Indication: GLAUCOMA
     Route: 065

REACTIONS (6)
  - Headache [Recovered/Resolved]
  - Speech disorder [Recovered/Resolved]
  - Feeling hot [Recovered/Resolved]
  - Discomfort [Recovered/Resolved]
  - Tension headache [Recovered/Resolved]
  - Visual impairment [Recovered/Resolved]

NARRATIVE: CASE EVENT DATE: 20141104
